FAERS Safety Report 6383382-3 (Version None)
Quarter: 2009Q4

REPORT INFORMATION
  Report Type: 
  Country: None (occurrence: None)
  Receive Date: 20091001
  Receipt Date: 20070619
  Transmission Date: 20100525
  Serious: Yes (Other)
  Sender: FDA-Public Use
  Company Number: US-ASTRAZENECA-2006UW12336

PATIENT
  Age: 19499 Day
  Sex: Female
  Weight: 88.9 kg

DRUGS (21)
  1. SEROQUEL [Suspect]
     Indication: SCHIZOPHRENIA
     Dosage: 25MG - 300MG AT NIGHT
     Route: 048
     Dates: start: 20040713
  2. SEROQUEL [Suspect]
     Indication: BIPOLAR DISORDER
     Dosage: 25MG - 300MG AT NIGHT
     Route: 048
     Dates: start: 20040713
  3. SEROQUEL [Suspect]
     Route: 048
  4. SEROQUEL [Suspect]
     Route: 048
  5. ABILIFY [Concomitant]
  6. RISPERDAL [Concomitant]
  7. STELAZINE [Concomitant]
  8. THORAZINE [Concomitant]
  9. ZYPREXA [Concomitant]
  10. SYNTHROID [Concomitant]
     Dosage: 0.25MG - 25MCG
     Dates: start: 19980410
  11. DEPAKOTE [Concomitant]
     Dosage: 500MG - 1500MG
     Dates: start: 19980410
  12. EFFEXOR [Concomitant]
     Dates: start: 19980410
  13. SIMVASTATIN [Concomitant]
     Dates: start: 19980410
  14. NORVASC [Concomitant]
     Dosage: 5MG - 2.5 MG
     Dates: start: 19980410
  15. PROCARDIA [Concomitant]
     Route: 048
     Dates: start: 19980410
  16. ASPIRIN [Concomitant]
     Dosage: 81MG -325MG
     Route: 048
     Dates: start: 20021220
  17. LASIX [Concomitant]
     Route: 048
     Dates: start: 20021220
  18. LIPITOR [Concomitant]
     Dosage: 20MG -40MG
     Route: 048
     Dates: start: 19980410
  19. PAXIL [Concomitant]
     Dosage: 20MG -25 MG
     Route: 048
     Dates: start: 20021220
  20. COGENTIN [Concomitant]
     Dates: start: 19831028
  21. TRILEPTAL [Concomitant]
     Dosage: 600MG -1200MG
     Route: 048
     Dates: start: 20031009

REACTIONS (2)
  - DIABETIC NEUROPATHY [None]
  - TYPE 2 DIABETES MELLITUS [None]
